FAERS Safety Report 25794803 (Version 1)
Quarter: 2025Q3

REPORT INFORMATION
  Report Type: Report from Study
  Country: US (occurrence: US)
  Receive Date: 20250912
  Receipt Date: 20250912
  Transmission Date: 20251021
  Serious: Yes (Other)
  Sender: EMD SERONO INC
  Company Number: US-Merck Healthcare KGaA-2025045850

PATIENT
  Age: 70 Year
  Sex: Female
  Weight: 42 kg

DRUGS (2)
  1. REBIF [Suspect]
     Active Substance: INTERFERON BETA-1A
     Indication: Multiple sclerosis
     Dates: start: 20050404, end: 20230607
  2. REBIF [Suspect]
     Active Substance: INTERFERON BETA-1A

REACTIONS (7)
  - Pancreatic failure [Unknown]
  - Colitis microscopic [Unknown]
  - Weight decreased [Unknown]
  - Multiple sclerosis [Unknown]
  - Balance disorder [Unknown]
  - Asthenia [Unknown]
  - Osteoporosis [Unknown]

NARRATIVE: CASE EVENT DATE: 20180101
